FAERS Safety Report 8426238-4 (Version None)
Quarter: 2012Q2

REPORT INFORMATION
  Report Type: 
  Country: None (occurrence: None)
  Receive Date: 20120323
  Receipt Date: 20110422
  Transmission Date: 20120825
  Serious: Yes (Other)
  Sender: FDA-Public Use
  Company Number: 163-21880-11043205

PATIENT
  Age: 77 Year
  Sex: Female
  Weight: 60.782 kg

DRUGS (11)
  1. FISH OIL (FISH OIL) [Concomitant]
  2. MULTIVITAMIN [Concomitant]
  3. ASPIRIN [Concomitant]
  4. ASCORBIC ACID [Concomitant]
  5. REVLIMID [Suspect]
     Indication: MULTIPLE MYELOMA
     Dosage: 25 MG, 1 IN 1 D, PO ; 15 MG, DAILY FOR 21 DAYS 7 DAYS OFF, PO
     Route: 048
     Dates: start: 20100704
  6. REVLIMID [Suspect]
     Indication: MULTIPLE MYELOMA
     Dosage: 25 MG, 1 IN 1 D, PO ; 15 MG, DAILY FOR 21 DAYS 7 DAYS OFF, PO
     Route: 048
     Dates: start: 20100701
  7. ADVAIR HFA [Concomitant]
  8. BIAXIN [Concomitant]
  9. MAGNESIUM (MAGNESIUM) [Concomitant]
  10. SPIRIVA [Concomitant]
  11. OXYGEN (OXYGEN) [Concomitant]

REACTIONS (3)
  - SKIN EXFOLIATION [None]
  - RASH ERYTHEMATOUS [None]
  - URTICARIA [None]
